FAERS Safety Report 5286251-5 (Version None)
Quarter: 2007Q1

REPORT INFORMATION
  Report Type: 
  Country: None (occurrence: None)
  Receive Date: 20070329
  Receipt Date: 20070319
  Transmission Date: 20070707
  Serious: Yes (Death)
  Sender: FDA-Public Use
  Company Number: 2006BI013605

PATIENT
  Age: 48 Year
  Sex: Male

DRUGS (5)
  1. AVONEX [Suspect]
     Indication: PROGRESSIVE MULTIPLE SCLEROSIS
     Dosage: 30 UG QW IM
     Route: 030
     Dates: start: 20040401, end: 20060901
  2. BACLOFEN [Concomitant]
  3. OXYBUTYNIN CHLORIDE [Concomitant]
  4. DOCUSATE [Concomitant]
  5. TIZANIDINE HCL [Concomitant]

REACTIONS (1)
  - MYOCARDIAL INFARCTION [None]
